FAERS Safety Report 5268758-X (Version None)
Quarter: 2007Q1

REPORT INFORMATION
  Report Type: 
  Country: None (occurrence: None)
  Receive Date: 20061213
  Receipt Date: 20040518
  Transmission Date: 20070707
  Serious: Yes (Other)
  Sender: FDA-Public Use
  Company Number: 2004UW10389

PATIENT
  Sex: Female

DRUGS (3)
  1. IRESSA [Suspect]
     Indication: BRONCHIAL CARCINOMA
     Dosage: 250 MG PO
     Route: 048
  2. PRILOSEC [Concomitant]
  3. ANTACID TAB [Concomitant]

REACTIONS (1)
  - GASTROOESOPHAGEAL REFLUX DISEASE [None]
